FAERS Safety Report 4868686-5 (Version None)
Quarter: 2005Q4

REPORT INFORMATION
  Report Type: 
  Country: None (occurrence: None)
  Receive Date: 20051223
  Receipt Date: 20051214
  Transmission Date: 20060501
  Serious: Yes (Other)
  Sender: FDA-Public Use
  Company Number: 2005158300

PATIENT
  Age: 74 Year
  Sex: Male

DRUGS (8)
  1. LIPITOR [Suspect]
     Indication: HYPERCHOLESTEROLAEMIA
     Dosage: 20 MG (20 MG, 1 IN 1 D)
  2. ANTIVERT [Suspect]
     Indication: VERTIGO
     Dosage: 25 MG (25 MG, 1 IN 1 D), ORAL
     Route: 048
  3. AMARYL [Suspect]
     Indication: DIABETES MELLITUS NON-INSULIN-DEPENDENT
     Dosage: 8 MG (4 MG, 2 IN 1 D)
  4. LISINOPRIL [Suspect]
     Indication: HYPERTENSION
     Dosage: 20 MG (20 MG, DAILY INTERVAL: EVERY DAY), ORAL
     Route: 048
  5. FUROSEMIDE [Suspect]
     Indication: HYPERTENSION
     Dosage: 40 MG (40 MG, DAILY INTERVAL: EVERY DAY), ORAL
     Route: 048
  6. METFORMN (METFORMIN) [Concomitant]
  7. ROSIGLITAZONE (ROSIGLITAZONE) [Concomitant]
  8. ASPIRIN [Concomitant]

REACTIONS (6)
  - ACANTHOSIS [None]
  - DERMATITIS [None]
  - DRUG ERUPTION [None]
  - GRANULOMA ANNULARE [None]
  - NECROBIOSIS LIPOIDICA DIABETICORUM [None]
  - SKIN PAPILLOMA [None]
